FAERS Safety Report 10168019 (Version 2)
Quarter: 2014Q2

REPORT INFORMATION
  Report Type: Report from Study
  Country: AR (occurrence: AR)
  Receive Date: 20140512
  Receipt Date: 20140512
  Transmission Date: 20141212
  Serious: Yes (Other)
  Sender: FDA-Public Use
  Company Number: PHHY2014AR050660

PATIENT
  Sex: Female

DRUGS (1)
  1. DIOVAN D [Suspect]
     Indication: HYPERTENSION
     Dosage: 1 DF (160/12.5 MG), DAILY
     Route: 048
     Dates: start: 2012

REACTIONS (6)
  - Diabetes mellitus [Not Recovered/Not Resolved]
  - Blood glucose fluctuation [Unknown]
  - Eye haemorrhage [Unknown]
  - Visual impairment [Unknown]
  - Nervousness [Unknown]
  - Anger [Unknown]
